FAERS Safety Report 5824044-8 (Version None)
Quarter: 2008Q3

REPORT INFORMATION
  Report Type: 
  Country: None (occurrence: None)
  Receive Date: 20080728
  Receipt Date: 20080724
  Transmission Date: 20090109
  Serious: Yes (Other)
  Sender: FDA-Public Use
  Company Number: US-BRISTOL-MYERS SQUIBB COMPANY-14276836

PATIENT
  Sex: Female

DRUGS (3)
  1. PARAPLATIN [Suspect]
     Indication: NEOPLASM MALIGNANT
     Dosage: 1 DOSEAGE FORM = 5 MG/ML/MIN AUC USING THE CLAVERT FORMULAE.
     Route: 042
  2. ACTIMMUNE [Suspect]
     Indication: NEOPLASM MALIGNANT
     Dosage: ON FIFTH AND SEVENTH DAY OF EACH 7-DAY CYCLE OF GM-CSF.
  3. LEUKINE [Suspect]
     Indication: NEOPLASM MALIGNANT
     Dosage: TWO 7-DAY COURSES, ONE PRECEDING AND ONE FOLLOWING A FIXED IV DOSE OF CARBOPLATIN
     Route: 058

REACTIONS (1)
  - SMALL INTESTINAL OBSTRUCTION [None]
